FAERS Safety Report 25192363 (Version 1)
Quarter: 2025Q2

REPORT INFORMATION
  Report Type: Other
  Country: CN (occurrence: CN)
  Receive Date: 20250414
  Receipt Date: 20250414
  Transmission Date: 20250717
  Serious: Yes (Hospitalization, Other)
  Sender: LYNE LABORATORIES
  Company Number: CN-Lyne Laboratories Inc.-2174799

PATIENT
  Age: 47 Year
  Sex: Female

DRUGS (6)
  1. DEXAMETHASONE [Suspect]
     Active Substance: DEXAMETHASONE
     Indication: B-cell type acute leukaemia
  2. CYCLOPHOSPHAMIDE [Suspect]
     Active Substance: CYCLOPHOSPHAMIDE
  3. ACLARUBICIN [Suspect]
     Active Substance: ACLARUBICIN
  4. CYTARABINE [Suspect]
     Active Substance: CYTARABINE
  5. VINCRISTINE SULFATE [Suspect]
     Active Substance: VINCRISTINE SULFATE
  6. IDARUBICIN HYDROCHLORIDE [Suspect]
     Active Substance: IDARUBICIN HYDROCHLORIDE

REACTIONS (1)
  - Acute myeloid leukaemia [Unknown]
